FAERS Safety Report 4591671-8 (Version None)
Quarter: 2005Q1

REPORT INFORMATION
  Report Type: 
  Country: None (occurrence: None)
  Receive Date: 20050218
  Receipt Date: 20050209
  Transmission Date: 20050727
  Serious: Yes (Hospitalization)
  Sender: FDA-Public Use
  Company Number: 2005024832

PATIENT
  Age: 67 Year
  Sex: Female
  Weight: 80 kg

DRUGS (4)
  1. AROMASIN [Suspect]
     Indication: BREAST CANCER
     Dosage: ORAL
     Route: 048
     Dates: start: 20040129
  2. FERROUS GLYCINE SULFATE (FERROUS GLYCINE SULFATE) [Concomitant]
  3. CANDESARTAN CILEXETIL (CANDESARTAN CILEXETIL) [Concomitant]
  4. METOPROLOL TARTRATE [Concomitant]

REACTIONS (16)
  - ANAEMIA OF MALIGNANT DISEASE [None]
  - BODY TEMPERATURE DECREASED [None]
  - CARDIAC FAILURE [None]
  - CIRCULATORY COLLAPSE [None]
  - CYANOSIS [None]
  - FEAR [None]
  - HEPATIC LESION [None]
  - METASTASES TO BONE MARROW [None]
  - MUSCULAR WEAKNESS [None]
  - NEPHROGENIC ANAEMIA [None]
  - NORMOCHROMIC NORMOCYTIC ANAEMIA [None]
  - PALLOR [None]
  - PULMONARY CONGESTION [None]
  - SYNCOPE [None]
  - URINARY TRACT INFECTION [None]
  - VARICOSE VEIN [None]
